FAERS Safety Report 17197835 (Version 1)
Quarter: 2019Q4

REPORT INFORMATION
  Report Type: Report from Study
  Country: None (occurrence: DE)
  Receive Date: 20191224
  Receipt Date: 20191224
  Transmission Date: 20200122
  Serious: Yes (Death)
  Sender: FDA-Public Use
  Company Number: DE-ABBVIE-19K-062-3206502-00

PATIENT
  Age: 0 Year
  Sex: Female
  Weight: 1.36 kg

DRUGS (4)
  1. METOPROLOL. [Concomitant]
     Active Substance: METOPROLOL
     Indication: PRODUCT USED FOR UNKNOWN INDICATION
     Dates: start: 20190111
  2. URSOFALK [Concomitant]
     Active Substance: URSODIOL
     Indication: CHOLELITHIASIS
     Dosage: 250 MG/ 5 ML SUSPENSION
     Dates: start: 20191113
  3. CORTISOL [Concomitant]
     Active Substance: HYDROCORTISONE
     Indication: RASH
  4. PALIVIZUMAB [Suspect]
     Active Substance: PALIVIZUMAB
     Indication: VENTRICULAR SEPTAL DEFECT
     Route: 030
     Dates: start: 20191121

REACTIONS (7)
  - Cough [Fatal]
  - Rash [Unknown]
  - Rhinorrhoea [Fatal]
  - Discoloured vomit [Fatal]
  - Off label use [Unknown]
  - Respiratory disorder [Not Recovered/Not Resolved]
  - Upper respiratory tract infection [Fatal]

NARRATIVE: CASE EVENT DATE: 2019
